FAERS Safety Report 5848772-3 (Version None)
Quarter: 2008Q3

REPORT INFORMATION
  Report Type: 
  Country: None (occurrence: None)
  Receive Date: 20080818
  Receipt Date: 20080811
  Transmission Date: 20090109
  Serious: Yes (Other)
  Sender: FDA-Public Use
  Company Number: US-BOEHRINGER INGELHEIM GMBH, GERMANY-2008-BP-11651BP

PATIENT
  Sex: Male

DRUGS (7)
  1. FLOMAX [Suspect]
     Indication: BENIGN PROSTATIC HYPERPLASIA
     Route: 048
     Dates: start: 20040101
  2. FLOMAX [Suspect]
     Indication: DYSURIA
  3. PENICILLIN [Concomitant]
     Indication: URINARY TRACT INFECTION
  4. LUPRON [Concomitant]
     Indication: HORMONE THERAPY
  5. ASPIRIN [Concomitant]
     Indication: CORONARY ARTERY BYPASS
  6. METOPROLOL TARTRATE [Concomitant]
     Indication: CORONARY ARTERY BYPASS
  7. SIMVASTATIN [Concomitant]
     Indication: CORONARY ARTERY BYPASS

REACTIONS (2)
  - NOCTURIA [None]
  - PROSTATE CANCER [None]
